FAERS Safety Report 9904201 (Version 1)
Quarter: 2014Q1

REPORT INFORMATION
  Report Type: Report from Study
  Country: US (occurrence: US)
  Receive Date: 20140218
  Receipt Date: 20140218
  Transmission Date: 20141002
  Serious: Yes (Death)
  Sender: FDA-Public Use
  Company Number: US-ROCHE-1326928

PATIENT
  Age: 56 Year
  Sex: Female
  Weight: 51.21 kg

DRUGS (14)
  1. AVASTIN [Suspect]
     Indication: BREAST CANCER METASTATIC
     Route: 042
     Dates: start: 20110526
  2. AVASTIN [Suspect]
     Indication: HEPATIC CANCER
  3. AVASTIN [Suspect]
     Indication: BONE CANCER
  4. AVASTIN [Suspect]
     Indication: NEOPLASM MALIGNANT
  5. CARBOPLATIN [Concomitant]
     Indication: BREAST CANCER
     Route: 065
  6. OXYCODONE [Concomitant]
     Indication: PAIN
     Dosage: 15MG PO Q4H PRN PAIN
     Route: 048
  7. LEXAPRO [Concomitant]
     Indication: DEPRESSION
     Dosage: QD
     Route: 048
  8. LACTULOSE [Concomitant]
     Indication: CONSTIPATION
     Dosage: 15ML PO QHS PRN
     Route: 065
  9. PRILOSEC [Concomitant]
     Dosage: QD
     Route: 065
  10. GEMZAR [Concomitant]
     Route: 042
  11. ALOXI [Concomitant]
     Indication: BREAST CANCER
     Route: 042
  12. HEXADROL [Concomitant]
     Route: 042
  13. FENTANYL [Concomitant]
  14. GENTLAX [Concomitant]

REACTIONS (11)
  - Death [Fatal]
  - Pain [Unknown]
  - Asthenia [Unknown]
  - Fatigue [Unknown]
  - Conjunctival pallor [Unknown]
  - Ocular icterus [Unknown]
  - Platelet count decreased [Unknown]
  - Anaemia [Unknown]
  - Blood bilirubin increased [Unknown]
  - Carcinoembryonic antigen increased [Unknown]
  - Liver function test abnormal [Unknown]
